FAERS Safety Report 6034546-X (Version None)
Quarter: 2009Q1

REPORT INFORMATION
  Report Type: 
  Country: None (occurrence: None)
  Receive Date: 20090108
  Receipt Date: 20090108
  Transmission Date: 20090719
  Serious: Yes (Hospitalization)
  Sender: FDA-Public Use
  Company Number: None

PATIENT
  Sex: Male
  Weight: 85.8 kg

DRUGS (3)
  1. CYCLOPHOSPHAMIDE [Suspect]
     Dosage: 1218MG
  2. PENTOSTATIN [Suspect]
     Dosage: 4.1MG
  3. RITUXIMAB (MOAHC2B8 ANTI CD20, CHIMERIC) [Suspect]
     Dosage: 761MG

REACTIONS (3)
  - DEHYDRATION [None]
  - PYREXIA [None]
  - RENAL FAILURE [None]
